FAERS Safety Report 25079620 (Version 2)
Quarter: 2025Q2

REPORT INFORMATION
  Report Type: Spontaneous
  Country: US (occurrence: US)
  Receive Date: 20250314
  Receipt Date: 20250530
  Transmission Date: 20250716
  Serious: Yes (Other)
  Sender: PARI RESPIRATORY EQUIPMENT
  Company Number: US-PARI RESPIRATORY EQUIPMENT, INC.-2025PAR00010

PATIENT
  Age: 15 Year
  Sex: Male

DRUGS (26)
  1. KITABIS PAK [Suspect]
     Active Substance: TOBRAMYCIN
     Indication: Cystic fibrosis
     Dosage: 300 MG (5 ML) TWICE A DAY FOR 28 DAYS ON AND 28 DAYS OFF
     Dates: start: 20190104
  2. KITABIS PAK [Suspect]
     Active Substance: TOBRAMYCIN
     Dosage: 300 MG (5 ML) TWICE A DAY FOR 28 DAYS ON AND 28 DAYS OFF
  3. ACIDOPHILUS [Concomitant]
     Active Substance: LACTOBACILLUS ACIDOPHILUS
  4. AQUADEKS [ASCORBIC ACID;BETACAROTENE;BIOTIN;CALCIUM PANTOTHENATE;COLEC [Concomitant]
  5. AZITHROMYCIN [Concomitant]
     Active Substance: AZITHROMYCIN
  6. BACTRIM DS [Concomitant]
     Active Substance: SULFAMETHOXAZOLE\TRIMETHOPRIM
  7. BOOST KIDS [Concomitant]
  8. CETIRIZINE HYDROCHLORIDE [Concomitant]
     Active Substance: CETIRIZINE HYDROCHLORIDE
  9. COMPLETE FORMULATION MULT [Concomitant]
  10. CREON [Concomitant]
     Active Substance: PANCRELIPASE AMYLASE\PANCRELIPASE LIPASE\PANCRELIPASE PROTEASE
  11. CREON [Concomitant]
     Active Substance: PANCRELIPASE AMYLASE\PANCRELIPASE LIPASE\PANCRELIPASE PROTEASE
  12. CYPROHEPTADINE HYDROCHLORIDE [Concomitant]
     Active Substance: CYPROHEPTADINE HYDROCHLORIDE
  13. SODIUM CHLORIDE [Concomitant]
     Active Substance: SODIUM CHLORIDE
  14. PRIMABELLA MIS [Concomitant]
  15. ZYRTEC [Concomitant]
     Active Substance: CETIRIZINE HYDROCHLORIDE
  16. CHILDRENS TYLENOL [Concomitant]
     Active Substance: ACETAMINOPHEN
  17. POLYETHYLENE GLYCOL 3350 [Concomitant]
     Active Substance: POLYETHYLENE GLYCOL 3350
  18. SODIUM CHLORIDE [Concomitant]
     Active Substance: SODIUM CHLORIDE
  19. PULMOZYME [Concomitant]
     Active Substance: DORNASE ALFA
  20. LORATADINE [Concomitant]
     Active Substance: LORATADINE
  21. URSODIOL [Concomitant]
     Active Substance: URSODIOL
  22. PREVACID [Concomitant]
     Active Substance: LANSOPRAZOLE
  23. FLONASE ALLERGY SPRAY [Concomitant]
  24. PROAIR HFA [Concomitant]
     Active Substance: ALBUTEROL SULFATE
  25. TRIKAFTA [Concomitant]
     Active Substance: ELEXACAFTOR\IVACAFTOR\TEZACAFTOR
  26. CIPROFLOXACIN HYDROCHLORIDE [Concomitant]
     Active Substance: CIPROFLOXACIN HYDROCHLORIDE

REACTIONS (11)
  - Pneumonia [Unknown]
  - Fatigue [Unknown]
  - Sleep disorder [Unknown]
  - Loss of personal independence in daily activities [Unknown]
  - Pharyngitis streptococcal [Unknown]
  - Infection [Unknown]
  - Product dose omission issue [Unknown]
  - Cystic fibrosis gastrointestinal disease [Unknown]
  - Flatulence [Unknown]
  - Abdominal pain upper [Unknown]
  - Pain [Unknown]

NARRATIVE: CASE EVENT DATE: 20250201
